FAERS Safety Report 10219599 (Version 2)
Quarter: 2014Q2

REPORT INFORMATION
  Report Type: Spontaneous
  Country: FR (occurrence: FR)
  Receive Date: 20140605
  Receipt Date: 20140624
  Transmission Date: 20141212
  Serious: Yes (Other)
  Sender: FDA-Public Use
  Company Number: FR-VIIV HEALTHCARE LIMITED-B0998535A

PATIENT
  Age: 43 Year
  Sex: Female

DRUGS (1)
  1. TIVICAY [Suspect]
     Indication: HIV INFECTION
     Dosage: 50MG PER DAY
     Route: 048
     Dates: start: 201403, end: 20140603

REACTIONS (3)
  - Headache [Recovering/Resolving]
  - Nervousness [Recovering/Resolving]
  - Depression [Recovering/Resolving]
